FAERS Safety Report 14717783 (Version 1)
Quarter: 2018Q2

REPORT INFORMATION
  Report Type: Spontaneous
  Country: US (occurrence: US)
  Receive Date: 20180404
  Receipt Date: 20180404
  Transmission Date: 20180711
  Serious: No
  Sender: FDA-Public Use
  Company Number: US-SA-2018SA027831

PATIENT
  Age: 63 Year
  Sex: Male

DRUGS (6)
  1. DUPIXENT [Suspect]
     Active Substance: DUPILUMAB
     Indication: ECZEMA
     Route: 058
     Dates: start: 20180120, end: 20180120
  2. DUPIXENT [Suspect]
     Active Substance: DUPILUMAB
     Indication: DERMATITIS ATOPIC
     Route: 058
     Dates: start: 20180203
  3. DUPIXENT [Suspect]
     Active Substance: DUPILUMAB
     Indication: ECZEMA
     Route: 058
     Dates: start: 20180203
  4. DUPIXENT [Suspect]
     Active Substance: DUPILUMAB
     Indication: DERMATITIS ATOPIC
     Route: 058
     Dates: start: 20180120, end: 20180120
  5. CORTISONE [Concomitant]
     Active Substance: CORTISONE\HYDROCORTISONE
     Route: 065
  6. METAXALONE. [Concomitant]
     Active Substance: METAXALONE
     Indication: BACK PAIN
     Route: 065

REACTIONS (8)
  - Skin fissures [Recovering/Resolving]
  - Cough [Not Recovered/Not Resolved]
  - Nasopharyngitis [Unknown]
  - Ocular hyperaemia [Unknown]
  - Oral herpes [Unknown]
  - Dry eye [Unknown]
  - Dry skin [Not Recovered/Not Resolved]
  - Pruritus [Not Recovered/Not Resolved]
